FAERS Safety Report 6136821-7 (Version None)
Quarter: 2009Q1

REPORT INFORMATION
  Report Type: 
  Country: None (occurrence: None)
  Receive Date: 20090325
  Receipt Date: 20090318
  Transmission Date: 20090719
  Serious: Yes (Hospitalization, Other)
  Sender: FDA-Public Use
  Company Number: 188361USA

PATIENT
  Age: 55 Year
  Sex: Female

DRUGS (7)
  1. ADDERALL TABLET, 5, 7.5, 10, 12.5, 20, 30MG (AMPHETAMINE W/DEXTROAMPHE [Suspect]
     Indication: ATTENTION DEFICIT/HYPERACTIVITY DISORDER
     Dosage: ORAL
     Route: 048
     Dates: end: 19970101
  2. ADDERALL TABLET, 5, 7.5, 10, 12.5, 20, 30MG (AMPHETAMINE W/DEXTROAMPHE [Suspect]
     Indication: ATTENTION DEFICIT/HYPERACTIVITY DISORDER
     Dosage: ORAL
     Route: 048
     Dates: start: 20030101, end: 20071123
  3. ADDERALL TABLET, 5, 7.5, 10, 12.5, 20, 30MG (AMPHETAMINE W/DEXTROAMPHE [Suspect]
     Indication: ATTENTION DEFICIT/HYPERACTIVITY DISORDER
     Dosage: ORAL
     Route: 048
     Dates: start: 20080101
  4. ADDERALL TABLET, 5, 7.5, 10, 12.5, 20, 30MG (AMPHETAMINE W/DEXTROAMPHE [Suspect]
     Indication: ATTENTION DEFICIT/HYPERACTIVITY DISORDER
     Dosage: ORAL
     Route: 048
     Dates: start: 20080201
  5. SYNTHROID [Concomitant]
  6. SERZONE [Concomitant]
  7. ZOLOFT [Concomitant]

REACTIONS (3)
  - CHOLECYSTECTOMY [None]
  - COLECTOMY [None]
  - NEOPLASM MALIGNANT [None]
